FAERS Safety Report 5197089-1 (Version None)
Quarter: 2007Q1

REPORT INFORMATION
  Report Type: 
  Country: None (occurrence: None)
  Receive Date: 20070103
  Receipt Date: 20061220
  Transmission Date: 20070707
  Serious: Yes (Death)
  Sender: FDA-Public Use
  Company Number: FR-ELI_LILLY_AND_COMPANY-FR200612003783

PATIENT
  Age: 79 Year
  Sex: Female

DRUGS (6)
  1. HUMALOG MIX 75/25 [Suspect]
     Indication: DIABETES MELLITUS
     Dosage: UNK, EACH EVENING
     Route: 058
  2. FLUARIX [Concomitant]
     Indication: INFLUENZA IMMUNISATION
     Dosage: 1 D/F, UNK
     Route: 058
     Dates: start: 20061106, end: 20061106
  3. HUMALOG MIX 50/50 [Suspect]
     Indication: DIABETES MELLITUS
     Dosage: UNK, EACH MORNING
     Route: 058
  4. DILTIAZEM [Concomitant]
     Dosage: 300 MG, DAILY (1/D)
     Route: 048
  5. TRIVASTAL [Concomitant]
     Dosage: 50 MG, DAILY (1/D)
     Route: 048
  6. DEPAKOTE [Concomitant]
     Dosage: 500 MG, 2/D
     Route: 048

REACTIONS (3)
  - GASTROOESOPHAGEAL REFLUX DISEASE [None]
  - MYOCARDIAL INFARCTION [None]
  - NAUSEA [None]
